FAERS Safety Report 11773020 (Version 1)
Quarter: 2015Q4

REPORT INFORMATION
  Report Type: Spontaneous
  Country: None (occurrence: None)
  Receive Date: 20151124
  Receipt Date: 20151124
  Transmission Date: 20160304
  Serious: No
  Sender: FDA-Public Use
  Company Number: None

PATIENT
  Weight: 72.57 kg

DRUGS (6)
  1. HYDROPHILIC (EQV AQUAPHOR) [Concomitant]
  2. POVIDONE-IODINE. [Concomitant]
     Active Substance: POVIDONE-IODINE
  3. COLLAGENASE [Concomitant]
     Active Substance: COLLAGENASE CLOSTRIDIUM HISTOLYTICUM
  4. DESONIDE. [Concomitant]
     Active Substance: DESONIDE
  5. FERROUS SULFATE [Concomitant]
     Active Substance: FERROUS SULFATE\FERROUS SULFATE, DRIED
  6. ERTAPENEM (ERTAPENEM 1GM/VIL INJ) [Suspect]
     Active Substance: ERTAPENEM
     Indication: OSTEOMYELITIS
     Dosage: 1GM/VIL
     Dates: start: 20150429, end: 20150502

REACTIONS (2)
  - Cerebrovascular accident [None]
  - Generalised tonic-clonic seizure [None]

NARRATIVE: CASE EVENT DATE: 20150502
